FAERS Safety Report 18379220 (Version 2)
Quarter: 2020Q4

REPORT INFORMATION
  Report Type: Spontaneous
  Country: AU (occurrence: AU)
  Receive Date: 20201013
  Receipt Date: 20201020
  Transmission Date: 20210114
  Serious: Yes (Other)
  Sender: FDA-Public Use
  Company Number: AU-PFIZER INC-2019064540

PATIENT
  Age: 51 Year
  Sex: Male

DRUGS (24)
  1. METHENAMINE HIPPURATE. [Concomitant]
     Active Substance: METHENAMINE HIPPURATE
     Dosage: UNK
  2. SODIUM VALPROATE [Concomitant]
     Active Substance: VALPROATE SODIUM
     Dosage: 1.5 G, 2X/DAY
  3. OXYBUTYNIN. [Concomitant]
     Active Substance: OXYBUTYNIN CHLORIDE
     Dosage: 5 MG, 1X/DAY
  4. ATORVASTATIN [Concomitant]
     Active Substance: ATORVASTATIN
     Dosage: 40 MG
  5. RIVAROXABAN [Concomitant]
     Active Substance: RIVAROXABAN
     Dosage: 20 MG, DAILY (MANE)
  6. MICROLAX [SODIUM CITRATE;SODIUM LAURYL SULFOACETATE] [Concomitant]
     Dosage: UNK
  7. PARACETAMOL [Concomitant]
     Active Substance: ACETAMINOPHEN
     Dosage: UNK
  8. GEMFIBROZIL. [Concomitant]
     Active Substance: GEMFIBROZIL
     Dosage: 600 MG, 2X/DAY
  9. BACLOFEN. [Concomitant]
     Active Substance: BACLOFEN
     Dosage: 15 MG, 2X/DAY
  10. QUETIAPINE. [Suspect]
     Active Substance: QUETIAPINE
     Dosage: UNK
  11. COLOXYL WITH SENNA [Concomitant]
     Active Substance: DOCUSATE SODIUM\SENNOSIDES A AND B
     Dosage: UNK
  12. CLIDINIUM [Concomitant]
     Active Substance: CLIDINIUM
     Dosage: UNK
  13. CHOLECALCIFEROL [Concomitant]
     Active Substance: CHOLECALCIFEROL
     Dosage: 40 MG
  14. MAGNESIUM [Concomitant]
     Active Substance: MAGNESIUM
     Dosage: UNK
  15. EXENATIDE. [Concomitant]
     Active Substance: EXENATIDE
     Dosage: UNK
  16. NOVORAPID [Concomitant]
     Active Substance: INSULIN ASPART
     Dosage: UNK
  17. SERTRALINE [Concomitant]
     Active Substance: SERTRALINE HYDROCHLORIDE
     Dosage: 150 MG, IN THE MORNING
  18. CLOPINE [Suspect]
     Active Substance: CLOZAPINE
     Dosage: 375 MG, AT NIGHT
     Dates: start: 20111004
  19. CLOZAPINE. [Suspect]
     Active Substance: CLOZAPINE
     Dosage: UNK
     Dates: start: 20100712
  20. CIPROFLOXACIN. [Suspect]
     Active Substance: CIPROFLOXACIN
     Dosage: UNK
  21. ASCORBIC ACID. [Concomitant]
     Active Substance: ASCORBIC ACID
     Dosage: UNK
  22. FORMOTEROL [Concomitant]
     Active Substance: FORMOTEROL
     Dosage: UNK
  23. TOPIRAMATE. [Concomitant]
     Active Substance: TOPIRAMATE
     Dosage: 50 MG, 2X/DAY
  24. METFORMIN [Concomitant]
     Active Substance: METFORMIN HYDROCHLORIDE
     Dosage: 2 G, IN THE MORNING

REACTIONS (24)
  - Electrocardiogram T wave abnormal [Unknown]
  - Left atrial enlargement [Unknown]
  - Left ventricular dysfunction [Unknown]
  - Mean cell haemoglobin concentration abnormal [Unknown]
  - Red cell distribution width abnormal [Unknown]
  - Blood bicarbonate abnormal [Unknown]
  - Monocyte count abnormal [Unknown]
  - Basophil count abnormal [Unknown]
  - Platelet count abnormal [Unknown]
  - Mitral valve incompetence [Unknown]
  - White blood cell count abnormal [Unknown]
  - Haematocrit abnormal [Unknown]
  - C-reactive protein abnormal [Unknown]
  - Cardiac disorder [Unknown]
  - Ischaemia [Unknown]
  - Electrocardiogram QT prolonged [Recovered/Resolved]
  - Haemoglobin abnormal [Unknown]
  - Neutrophil count abnormal [Unknown]
  - Cardiomyopathy [Unknown]
  - Tricuspid valve incompetence [Unknown]
  - Sinus tachycardia [Unknown]
  - Aortic valve sclerosis [Unknown]
  - Blood creatinine abnormal [Unknown]
  - Mean cell haemoglobin decreased [Unknown]

NARRATIVE: CASE EVENT DATE: 20200427
